FAERS Safety Report 20369165 (Version 2)
Quarter: 2022Q1

REPORT INFORMATION
  Report Type: Report from Study
  Country: CA (occurrence: CA)
  Receive Date: 20220124
  Receipt Date: 20220125
  Transmission Date: 20220423
  Serious: Yes (Other)
  Sender: FDA-Public Use
  Company Number: CA-BAUSCH-BL-2022-000640

PATIENT

DRUGS (3)
  1. CONTRAVE [Suspect]
     Active Substance: BUPROPION HYDROCHLORIDE\NALTREXONE HYDROCHLORIDE
     Indication: Weight control
     Dosage: 8/90 MG, 1 TAB QAM, WEEK 1 (1 DOSAGE FORMS, 1 IN 1 D)
     Route: 048
     Dates: start: 20220102, end: 202201
  2. CONTRAVE [Suspect]
     Active Substance: BUPROPION HYDROCHLORIDE\NALTREXONE HYDROCHLORIDE
     Dosage: 8/90 MG, 1 TAB QAM, 1 TAB QPM WEEK 2 (1 DOSAGE FORMS, 1 IN 12 HR)
     Route: 048
     Dates: start: 202201, end: 20220111
  3. AMLODIPINE [Concomitant]
     Active Substance: AMLODIPINE BESYLATE
     Indication: Hypertension
     Dosage: 5 MG, 1 IN 1 D
     Route: 048

REACTIONS (8)
  - Blood pressure increased [Recovered/Resolved]
  - Panic reaction [Recovered/Resolved]
  - Paraesthesia [Recovered/Resolved]
  - Presyncope [Recovered/Resolved]
  - Heart rate increased [Recovered/Resolved]
  - Nausea [Recovered/Resolved]
  - Dizziness [Recovered/Resolved]
  - Drug titration error [Unknown]

NARRATIVE: CASE EVENT DATE: 20220101
